FAERS Safety Report 16426746 (Version 1)
Quarter: 2019Q2

REPORT INFORMATION
  Report Type: Spontaneous
  Country: US (occurrence: US)
  Receive Date: 20190507
  Receipt Date: 20190507
  Transmission Date: 20190711
  Serious: No
  Sender: FDA-Public Use
  Company Number: None

PATIENT
  Age: 68 Year
  Sex: Male

DRUGS (2)
  1. NINLARO [Suspect]
     Active Substance: IXAZOMIB CITRATE
     Indication: PLASMA CELL MYELOMA
     Dosage: ?          OTHER FREQUENCY:ONCEAWKFOR3WK;?
     Route: 048
     Dates: start: 20190109
  2. NINLARO [Suspect]
     Active Substance: IXAZOMIB CITRATE
     Indication: DISEASE RECURRENCE
     Dosage: ?          OTHER FREQUENCY:ONCEAWKFOR3WK;?
     Route: 048
     Dates: start: 20190109

REACTIONS (2)
  - Peripheral swelling [None]
  - Joint swelling [None]

NARRATIVE: CASE EVENT DATE: 201903
